FAERS Safety Report 5266291-2 (Version None)
Quarter: 2007Q1

REPORT INFORMATION
  Report Type: 
  Country: None (occurrence: None)
  Receive Date: 20070315
  Receipt Date: 20070308
  Transmission Date: 20070707
  Serious: Yes (Life-Threatening)
  Sender: FDA-Public Use
  Company Number: JP-AVENTIS-200710624JP

PATIENT
  Age: 73 Year
  Sex: Male
  Weight: 73 kg

DRUGS (6)
  1. ARAVA [Suspect]
     Indication: RHEUMATOID ARTHRITIS
     Route: 048
     Dates: start: 20060727
  2. MOBIC [Concomitant]
  3. PROMAC                             /01312301/ [Concomitant]
  4. OMEPRAL [Concomitant]
  5. PREDONINE                          /00016201/ [Concomitant]
     Dosage: DOSE: 1/2 TABLETS
     Route: 048
  6. RHEUMATREX                         /00113801/ [Concomitant]
     Dates: end: 20060420

REACTIONS (1)
  - BLADDER CANCER RECURRENT [None]
